FAERS Safety Report 7674378-X (Version None)
Quarter: 2011Q3

REPORT INFORMATION
  Report Type: 
  Country: None (occurrence: None)
  Receive Date: 20110810
  Receipt Date: 20110801
  Transmission Date: 20111222
  Serious: Yes (Death)
  Sender: FDA-Public Use
  Company Number: GB-SANOFI-AVENTIS-2011SA048986

PATIENT
  Age: 75 Year
  Sex: Male
  Weight: 76.9 kg

DRUGS (5)
  1. STRONTIUM CHLORIDE SR-89 [Suspect]
     Indication: RECTAL CANCER
  2. DOCETAXEL [Suspect]
     Route: 041
     Dates: start: 20110512, end: 20110512
  3. PREDNISOLONE [Suspect]
     Indication: RECTAL CANCER
     Dates: start: 20110127, end: 20110602
  4. ZOLEDRONIC ACID [Suspect]
     Indication: RECTAL CANCER
     Dates: start: 20110127, end: 20110512
  5. DOCETAXEL [Suspect]
     Indication: RECTAL CANCER
     Route: 041
     Dates: start: 20110127, end: 20110127

REACTIONS (2)
  - MYOCARDIAL ISCHAEMIA [None]
  - PAIN [None]
